FAERS Safety Report 4828033-1 (Version None)
Quarter: 2005Q4

REPORT INFORMATION
  Report Type: 
  Country: None (occurrence: None)
  Receive Date: 20051115
  Receipt Date: 20051104
  Transmission Date: 20060501
  Serious: Yes (Hospitalization)
  Sender: FDA-Public Use
  Company Number: JP-JNJFOC-20041001019

PATIENT
  Sex: Female
  Weight: 64 kg

DRUGS (15)
  1. REMICADE [Suspect]
     Route: 042
  2. REMICADE [Suspect]
     Route: 042
  3. REMICADE [Suspect]
     Indication: RHEUMATOID ARTHRITIS
     Route: 042
  4. RHEUMATREX [Suspect]
     Route: 048
  5. RHEUMATREX [Suspect]
     Indication: DRUG USE FOR UNKNOWN INDICATION
     Route: 048
  6. PREDONINE [Suspect]
     Route: 048
  7. PREDONINE [Suspect]
     Indication: RHEUMATOID ARTHRITIS
     Route: 048
  8. EUGLUCON [Suspect]
     Indication: DIABETES MELLITUS
     Route: 048
  9. INNOLET R [Suspect]
     Dosage: 18 UT
     Route: 058
  10. INNOLET R [Suspect]
     Dosage: 20 UT
     Route: 058
  11. INNOLET R [Suspect]
     Dosage: 24 UT
     Route: 058
  12. INNOLET R [Suspect]
     Indication: DIABETES MELLITUS
     Dosage: 28 UT
     Route: 058
  13. GLUCOBAY [Suspect]
     Indication: DIABETES MELLITUS
     Route: 048
  14. BONALON [Concomitant]
     Route: 048
  15. MUCOSTA [Concomitant]
     Route: 048

REACTIONS (2)
  - ARTHRITIS [None]
  - HYPOGLYCAEMIA [None]
